FAERS Safety Report 7241507-1 (Version None)
Quarter: 2011Q1

REPORT INFORMATION
  Report Type: 
  Country: None (occurrence: None)
  Receive Date: 20110124
  Receipt Date: 20110121
  Transmission Date: 20110831
  Serious: Yes (Hospitalization)
  Sender: FDA-Public Use
  Company Number: JP-BAYER-200811426BYL

PATIENT
  Age: 66 Year
  Sex: Female
  Weight: 70.4 kg

DRUGS (5)
  1. NEXAVAR [Suspect]
     Indication: RENAL CELL CARCINOMA
     Route: 048
     Dates: start: 20080609, end: 20080620
  2. NORVASC [Concomitant]
     Dosage: BEFORE NEXAVAR ADMINISTRATION
     Route: 048
  3. CARDENALIN [Concomitant]
     Dosage: BEFORE NEXAVAR ADMINISTRATION
     Route: 048
  4. RIZE [Concomitant]
     Indication: MALAISE
     Dosage: BEFORE NEXAVAR ADMINISTRATION
     Route: 048
  5. NEXAVAR [Suspect]
     Route: 048
     Dates: start: 20080702, end: 20090724

REACTIONS (6)
  - GASTRIC HAEMORRHAGE [None]
  - PALMAR-PLANTAR ERYTHRODYSAESTHESIA SYNDROME [None]
  - GASTRIC ANTRAL VASCULAR ECTASIA [None]
  - BLOOD AMYLASE INCREASED [None]
  - RASH [None]
  - HYPERTENSION [None]
